FAERS Safety Report 9850285 (Version 2)
Quarter: 2014Q1

REPORT INFORMATION
  Report Type: Spontaneous
  Country: FR (occurrence: FR)
  Receive Date: 20140128
  Receipt Date: 20140220
  Transmission Date: 20141002
  Serious: Yes (Hospitalization)
  Sender: FDA-Public Use
  Company Number: FR-GLAXOSMITHKLINE-B0962554A

PATIENT
  Age: 58 Year
  Sex: Female

DRUGS (3)
  1. ARIXTRA [Suspect]
     Indication: PHLEBITIS
     Dosage: 7.5MG PER DAY
     Route: 058
     Dates: start: 20130803, end: 20130813
  2. PREVISCAN (FLUINDIONE) [Suspect]
     Indication: PHLEBITIS
     Dosage: 20MG PER DAY
     Route: 048
     Dates: start: 20130805, end: 20130812
  3. NSAID [Concomitant]
     Indication: LIGAMENT SPRAIN
     Route: 065
     Dates: start: 20130729

REACTIONS (4)
  - Muscle haemorrhage [Recovered/Resolved with Sequelae]
  - Nerve compression [Recovered/Resolved with Sequelae]
  - Groin pain [Recovered/Resolved with Sequelae]
  - Drug interaction [Unknown]
